FAERS Safety Report 7561154-1 (Version None)
Quarter: 2011Q2

REPORT INFORMATION
  Report Type: 
  Country: None (occurrence: None)
  Receive Date: 20110621
  Receipt Date: 20100527
  Transmission Date: 20111010
  Serious: No
  Sender: FDA-Public Use
  Company Number: US-ASTRAZENECA-2010SE24686

PATIENT
  Age: 82 Year
  Sex: Male

DRUGS (2)
  1. PULMICORT [Suspect]
     Route: 055
     Dates: start: 20091001
  2. DUONEB [Concomitant]

REACTIONS (1)
  - SPUTUM ABNORMAL [None]
